FAERS Safety Report 5259471-3 (Version None)
Quarter: 2007Q1

REPORT INFORMATION
  Report Type: 
  Country: None (occurrence: None)
  Receive Date: 20070305
  Receipt Date: 20070301
  Transmission Date: 20070707
  Serious: Yes (Other)
  Sender: FDA-Public Use
  Company Number: 232481

PATIENT
  Age: 50 Year
  Sex: Female
  Weight: 63 kg

DRUGS (5)
  1. AVASTIN [Suspect]
     Indication: CHORIORETINAL ATROPHY
     Dosage: INTRAVITREAL
     Dates: start: 20060601, end: 20060901
  2. AVELOX [Concomitant]
  3. SYNTHROID [Concomitant]
  4. ZYRTEC [Concomitant]
  5. VITAMINS (VITAMINS NOS) [Concomitant]

REACTIONS (5)
  - BLINDNESS UNILATERAL [None]
  - DRUG HYPERSENSITIVITY [None]
  - EYE INFLAMMATION [None]
  - MYALGIA [None]
  - TENDON PAIN [None]
